FAERS Safety Report 7338217-9 (Version None)
Quarter: 2011Q1

REPORT INFORMATION
  Report Type: 
  Country: None (occurrence: None)
  Receive Date: 20110308
  Receipt Date: 20110304
  Transmission Date: 20110831
  Serious: No
  Sender: FDA-Public Use
  Company Number: US-PFIZER INC-2011048321

PATIENT
  Sex: Male
  Weight: 83.9 kg

DRUGS (1)
  1. NITROSTAT [Suspect]
     Indication: PAIN
     Dosage: UNK, AS NEEDED
     Route: 048

REACTIONS (2)
  - DRUG INEFFECTIVE [None]
  - PRODUCT SOLUBILITY ABNORMAL [None]
